FAERS Safety Report 11623440 (Version 1)
Quarter: 2015Q4

REPORT INFORMATION
  Report Type: Spontaneous
  Country: DK (occurrence: DK)
  Receive Date: 20151013
  Receipt Date: 20151013
  Transmission Date: 20160304
  Serious: Yes (Death)
  Sender: FDA-Public Use
  Company Number: DK-FRESENIUS KABI-FK201504875

PATIENT
  Sex: Male

DRUGS (3)
  1. CISPLATIN. [Concomitant]
     Active Substance: CISPLATIN
     Indication: SEMINOMA
  2. BLEOMYCIN [Suspect]
     Active Substance: BLEOMYCIN SULFATE
     Indication: SEMINOMA
     Route: 065
  3. ETOPOSIDE. [Concomitant]
     Active Substance: ETOPOSIDE
     Indication: SEMINOMA

REACTIONS (1)
  - Sepsis [Fatal]
